FAERS Safety Report 14491687 (Version 2)
Quarter: 2018Q1

REPORT INFORMATION
  Report Type: Report from Study
  Country: US (occurrence: US)
  Receive Date: 20180206
  Receipt Date: 20180212
  Transmission Date: 20180509
  Serious: No
  Sender: FDA-Public Use
  Company Number: PHEH2018US004631

PATIENT
  Age: 43 Year
  Sex: Female

DRUGS (2)
  1. COSENTYX [Suspect]
     Active Substance: SECUKINUMAB
     Indication: PSORIATIC ARTHROPATHY
     Dosage: 300 MG, QW
     Route: 058
     Dates: start: 20180116
  2. COSENTYX [Suspect]
     Active Substance: SECUKINUMAB
     Indication: PSORIASIS

REACTIONS (4)
  - Upper respiratory tract infection [Unknown]
  - Fatigue [Recovering/Resolving]
  - Influenza [Unknown]
  - Pyrexia [Unknown]

NARRATIVE: CASE EVENT DATE: 20180117
